FAERS Safety Report 6661621-9 (Version None)
Quarter: 2010Q1

REPORT INFORMATION
  Report Type: 
  Country: None (occurrence: None)
  Receive Date: 20100331
  Receipt Date: 20090317
  Transmission Date: 20100710
  Serious: No
  Sender: FDA-Public Use
  Company Number: US-BRISTOL-MYERS SQUIBB COMPANY-14527345

PATIENT
  Age: 77 Year
  Sex: Female

DRUGS (5)
  1. ERBITUX [Suspect]
     Indication: LUNG NEOPLASM MALIGNANT
     Dosage: 600MG LOADING DOSE
     Route: 042
     Dates: start: 20090227, end: 20090227
  2. TARCEVA [Suspect]
  3. SYNTHROID [Suspect]
  4. RYTHMOL [Suspect]
  5. BENADRYL [Concomitant]
     Indication: PREMEDICATION

REACTIONS (4)
  - BLOOD PRESSURE INCREASED [None]
  - BURNING SENSATION [None]
  - DYSPNOEA [None]
  - FLUSHING [None]
